FAERS Safety Report 10582081 (Version 1)
Quarter: 2014Q4

REPORT INFORMATION
  Report Type: Spontaneous
  Country: AE (occurrence: AE)
  Receive Date: 20141113
  Receipt Date: 20141113
  Transmission Date: 20150529
  Serious: Yes (Life-Threatening, Hospitalization, Other)
  Sender: FDA-Public Use
  Company Number: PHHY2014AE147641

PATIENT
  Age: 34 Year
  Sex: Female

DRUGS (12)
  1. LORAZEPAM. [Concomitant]
     Active Substance: LORAZEPAM
     Indication: PRODUCT USED FOR UNKNOWN INDICATION
     Route: 065
  2. PROPOFOL. [Suspect]
     Active Substance: PROPOFOL
     Indication: SEDATION
     Route: 065
  3. MIDAZOLAM [Suspect]
     Active Substance: MIDAZOLAM\MIDAZOLAM HYDROCHLORIDE
     Indication: SEDATION
     Route: 041
  4. FENTANYL. [Suspect]
     Active Substance: FENTANYL
     Indication: SEDATION
     Route: 065
  5. RISPERIDONE. [Concomitant]
     Active Substance: RISPERIDONE
     Indication: PSYCHOTIC DISORDER
     Route: 065
  6. DIAZEPAM. [Suspect]
     Active Substance: DIAZEPAM
     Indication: NEUROLEPTIC MALIGNANT SYNDROME
     Route: 065
  7. DANTROLENE [Suspect]
     Active Substance: DANTROLENE
     Indication: NEUROLEPTIC MALIGNANT SYNDROME
     Route: 065
  8. OLANZAPINE. [Concomitant]
     Active Substance: OLANZAPINE
     Indication: PSYCHOTIC DISORDER
     Route: 065
  9. PRAMIPEXOLE [Suspect]
     Active Substance: PRAMIPEXOLE
     Indication: NEUROLEPTIC MALIGNANT SYNDROME
     Route: 065
  10. SINEMET [Suspect]
     Active Substance: CARBIDOPA\LEVODOPA
     Indication: NEUROLEPTIC MALIGNANT SYNDROME
     Route: 065
  11. PROCYCLIDINE [Suspect]
     Active Substance: PROCYCLIDINE
     Indication: NEUROLEPTIC MALIGNANT SYNDROME
     Route: 065
  12. HALOPERIDOL. [Concomitant]
     Active Substance: HALOPERIDOL
     Indication: PSYCHOTIC DISORDER
     Route: 065

REACTIONS (3)
  - Drug ineffective [Unknown]
  - Neuroleptic malignant syndrome [Recovering/Resolving]
  - Multiple-drug resistance [Recovering/Resolving]
